FAERS Safety Report 6910360-5 (Version None)
Quarter: 2010Q3

REPORT INFORMATION
  Report Type: 
  Country: None (occurrence: None)
  Receive Date: 20100806
  Receipt Date: 20100727
  Transmission Date: 20110219
  Serious: Yes (Death, Other)
  Sender: FDA-Public Use
  Company Number: GB-JNJFOC-20100708277

PATIENT
  Age: 73 Year
  Sex: Male
  Weight: 61 kg

DRUGS (8)
  1. INFLIXIMAB, RECOMBINANT [Suspect]
     Indication: RHEUMATOID ARTHRITIS
     Route: 042
  2. INFLIXIMAB, RECOMBINANT [Suspect]
     Route: 042
  3. METHOTREXATE [Concomitant]
  4. FOLIC ACID [Concomitant]
  5. TRANEXAMIC ACID [Concomitant]
  6. CO-DYDRAMOL [Concomitant]
  7. VITAMIN B-12 [Concomitant]
  8. FUROSEMIDE [Concomitant]

REACTIONS (3)
  - DYSPHAGIA [None]
  - LOWER RESPIRATORY TRACT INFECTION [None]
  - RECTAL HAEMORRHAGE [None]
